FAERS Safety Report 23770881 (Version 3)
Quarter: 2024Q2

REPORT INFORMATION
  Report Type: Report from Study
  Country: KR (occurrence: KR)
  Receive Date: 20240423
  Receipt Date: 20240523
  Transmission Date: 20240716
  Serious: Yes (Life-Threatening, Hospitalization, Other)
  Sender: FDA-Public Use
  Company Number: KR-JAZZ PHARMACEUTICALS-2024-KR-006363

PATIENT
  Age: 70 Year
  Sex: Male
  Weight: 68 kg

DRUGS (16)
  1. LURBINECTEDIN [Suspect]
     Active Substance: LURBINECTEDIN
     Indication: Small cell lung cancer
     Dosage: 3.2 MILLIGRAM/SQ. METER, Q3W
     Route: 042
     Dates: start: 20240214, end: 20240327
  2. K CAB [Concomitant]
     Indication: Gastrooesophageal reflux disease
     Dosage: 1 DOSAGE FORM, QD
     Route: 048
     Dates: start: 20231023
  3. TACOPEN [Concomitant]
     Indication: Pain
     Dosage: 1 DOSAGE FORM, TID
     Route: 048
     Dates: start: 20231016
  4. ANYCOUGH [THEOBROMINE] [Concomitant]
     Indication: Cough
     Dosage: 1 DOSAGE FORM, BID
     Route: 048
     Dates: start: 20231016
  5. PREGABALIN [Concomitant]
     Active Substance: PREGABALIN
     Indication: Pain prophylaxis
     Dosage: 1 DOSAGE FORM, BID
     Route: 048
     Dates: start: 20231016, end: 20240428
  6. FENTORA [Concomitant]
     Active Substance: FENTANYL CITRATE
     Indication: Pain prophylaxis
     Dosage: 1 DOSAGE FORM
     Route: 048
     Dates: start: 20231016
  7. YUHAN DEXAMETHASONE DISODIUM PHOSPHATE [Concomitant]
     Indication: Prophylaxis of nausea and vomiting
     Dosage: 10 MILLIGRAM, QD
     Route: 042
     Dates: start: 20240214, end: 20240214
  8. YUHAN DEXAMETHASONE DISODIUM PHOSPHATE [Concomitant]
     Dosage: 10 MILLIGRAM, QD
     Route: 042
     Dates: start: 20240306, end: 20240306
  9. YUHAN DEXAMETHASONE DISODIUM PHOSPHATE [Concomitant]
     Dosage: 10 MILLIGRAM, QD
     Route: 042
     Dates: start: 20240327, end: 20240327
  10. ALOXI [Concomitant]
     Active Substance: PALONOSETRON HYDROCHLORIDE
     Indication: Prophylaxis of nausea and vomiting
     Dosage: 50 MILLILITER, QD
     Route: 042
     Dates: start: 20240214, end: 20240214
  11. ALOXI [Concomitant]
     Active Substance: PALONOSETRON HYDROCHLORIDE
     Dosage: 5 MILLILITER, QD
     Route: 042
     Dates: start: 20240306, end: 20240306
  12. ALOXI [Concomitant]
     Active Substance: PALONOSETRON HYDROCHLORIDE
     Dosage: 5 MILLILITER, QD
     Route: 042
     Dates: start: 20240327, end: 20240327
  13. SOLONDO [PREDNISOLONE] [Concomitant]
     Indication: Metastases to central nervous system
     Dosage: 2 DOSAGE FORM, BID
     Route: 048
     Dates: start: 20240221, end: 20240416
  14. EPILATAM [Concomitant]
     Indication: Metastases to central nervous system
     Dosage: 1 DOSAGE FORM, BID
     Route: 048
     Dates: start: 20240221
  15. AXID [ESOMEPRAZOLE MAGNESIUM] [Concomitant]
     Indication: Gastrooesophageal reflux disease
     Dosage: 1 DOSAGE FORM, BID
     Route: 048
     Dates: start: 20240221
  16. CHOLINE ALFOSCERATE [Concomitant]
     Active Substance: CHOLINE ALFOSCERATE
     Indication: Metastases to central nervous system
     Dosage: 1 DOSAGE FORM, BID
     Route: 048
     Dates: start: 20240417

REACTIONS (1)
  - Pneumonitis [Recovered/Resolved]

NARRATIVE: CASE EVENT DATE: 20240417
